FAERS Safety Report 18325689 (Version 1)
Quarter: 2020Q3

REPORT INFORMATION
  Report Type: Spontaneous
  Country: US (occurrence: US)
  Receive Date: 20200929
  Receipt Date: 20200929
  Transmission Date: 20201103
  Serious: No
  Sender: FDA-Public Use
  Company Number: US-AKRON, INC.-2092280

PATIENT
  Sex: Female

DRUGS (2)
  1. TROPICAMIDE OPHTHALMIC SOLUTION [Suspect]
     Active Substance: TROPICAMIDE
     Indication: EYE DISORDER
     Route: 047
     Dates: start: 20200831, end: 20200831
  2. PHENYLEPHRINE HCL [Suspect]
     Active Substance: PHENYLEPHRINE HYDROCHLORIDE
     Route: 047
     Dates: start: 20200831, end: 20200831

REACTIONS (5)
  - Impaired work ability [Recovering/Resolving]
  - Photophobia [Recovering/Resolving]
  - Mydriasis [Recovering/Resolving]
  - Dizziness [Recovering/Resolving]
  - Vision blurred [Recovering/Resolving]
